FAERS Safety Report 7444329-1 (Version None)
Quarter: 2011Q2

REPORT INFORMATION
  Report Type: 
  Country: None (occurrence: None)
  Receive Date: 20110419
  Receipt Date: 20110415
  Transmission Date: 20111010
  Serious: Yes (Hospitalization)
  Sender: FDA-Public Use
  Company Number: CHL-AE-2011-LAM-002

PATIENT
  Age: 25 Year
  Sex: Male

DRUGS (2)
  1. LAMOTRIGINE [Suspect]
     Indication: CONVULSION
     Dosage: 400-1600MG, DAILY
  2. LEVETIRACETAM [Concomitant]

REACTIONS (3)
  - TOXICITY TO VARIOUS AGENTS [None]
  - OCULOGYRIC CRISIS [None]
  - INCORRECT DOSE ADMINISTERED [None]
